FAERS Safety Report 11654149 (Version 1)
Quarter: 2015Q4

REPORT INFORMATION
  Report Type: Spontaneous
  Country: KW (occurrence: KW)
  Receive Date: 20151023
  Receipt Date: 20151023
  Transmission Date: 20160304
  Serious: Yes (Other)
  Sender: FDA-Public Use
  Company Number: KW-ROCHE-1648953

PATIENT
  Age: 41 Year
  Sex: Male

DRUGS (2)
  1. SOMATROPIN [Suspect]
     Active Substance: SOMATROPIN
     Indication: MUSCLE BUILDING THERAPY
     Route: 065
  2. SOMATROPIN [Suspect]
     Active Substance: SOMATROPIN
     Indication: PRODUCT USE ISSUE

REACTIONS (3)
  - Focal segmental glomerulosclerosis [Recovered/Resolved]
  - Off label use [Unknown]
  - Intentional product misuse [Unknown]
